FAERS Safety Report 23892349 (Version 2)
Quarter: 2024Q3

REPORT INFORMATION
  Report Type: Report from Study
  Country: US (occurrence: US)
  Receive Date: 20240524
  Receipt Date: 20240802
  Transmission Date: 20241017
  Serious: No
  Sender: ACADIA PHARMACEUTICALS
  Company Number: US-ACADIA PHARMACEUTICALS INC.-ACA-2024-PIM-002223

PATIENT
  Age: 83 Year
  Sex: Male

DRUGS (16)
  1. NUPLAZID [Suspect]
     Active Substance: PIMAVANSERIN TARTRATE
     Indication: Parkinson^s disease psychosis
     Dosage: 34 MILLIGRAM, QD
     Route: 048
  2. NUPLAZID [Suspect]
     Active Substance: PIMAVANSERIN TARTRATE
     Indication: Hallucination
     Dosage: 34 MILLIGRAM, QD
     Route: 048
     Dates: start: 20240502
  3. NUPLAZID [Suspect]
     Active Substance: PIMAVANSERIN TARTRATE
     Indication: Delusion
  4. NUPLAZID [Suspect]
     Active Substance: PIMAVANSERIN TARTRATE
     Indication: Parkinson^s disease
  5. ELIQUIS [Concomitant]
     Active Substance: APIXABAN
  6. ASPIRIN [Concomitant]
     Active Substance: ASPIRIN
  7. CARBIDOPA\LEVODOPA [Concomitant]
     Active Substance: CARBIDOPA\LEVODOPA
  8. FINASTERIDE [Concomitant]
     Active Substance: FINASTERIDE
  9. LEVEMIR [Concomitant]
     Active Substance: INSULIN DETEMIR
  10. TAMSULOSIN [Concomitant]
     Active Substance: TAMSULOSIN
  11. VITAMIN B [Concomitant]
     Active Substance: VITAMIN B
  12. JANUVIA [Concomitant]
     Active Substance: SITAGLIPTIN PHOSPHATE
  13. SIMVASTATIN [Concomitant]
     Active Substance: SIMVASTATIN
  14. PREDNISONE [Concomitant]
     Active Substance: PREDNISONE
  15. MIRTAZAPINE [Concomitant]
     Active Substance: MIRTAZAPINE
  16. NOVOLIN NOS [Concomitant]
     Active Substance: INSULIN HUMAN

REACTIONS (3)
  - Swelling [Unknown]
  - Behaviour disorder [Unknown]
  - Fatigue [Not Recovered/Not Resolved]

NARRATIVE: CASE EVENT DATE: 20240502
